FAERS Safety Report 4893117-9 (Version None)
Quarter: 2005Q4

REPORT INFORMATION
  Report Type: 
  Country: None (occurrence: None)
  Receive Date: 20051223
  Receipt Date: 20041201
  Transmission Date: 20060501
  Serious: Yes (Hospitalization)
  Sender: FDA-Public Use
  Company Number: PHEH2004US12736

PATIENT
  Age: 73 Year
  Sex: Female

DRUGS (7)
  1. CLOZARIL [Suspect]
     Dosage: 100 MG, QD, ORAL; 125 MG, QD, ORAL; 175 MG, QD, ORAL; 250 MG, QD, ORAL
     Route: 048
     Dates: end: 20041124
  2. CLOZARIL [Suspect]
     Dosage: 100 MG, QD, ORAL; 125 MG, QD, ORAL; 175 MG, QD, ORAL; 250 MG, QD, ORAL
     Route: 048
     Dates: start: 20041125, end: 20041125
  3. CLOZARIL [Suspect]
     Dosage: 100 MG, QD, ORAL; 125 MG, QD, ORAL; 175 MG, QD, ORAL; 250 MG, QD, ORAL
     Route: 048
     Dates: start: 20041126, end: 20041127
  4. CLOZARIL [Suspect]
     Dosage: 100 MG, QD, ORAL; 125 MG, QD, ORAL; 175 MG, QD, ORAL; 250 MG, QD, ORAL
     Route: 048
     Dates: start: 20041128
  5. NPH INSULIN [Concomitant]
  6. FUROSEMIDE [Concomitant]
  7. LEVOTHYROXINE SODIUM [Concomitant]

REACTIONS (4)
  - LEUKOCYTOSIS [None]
  - NEUTROPENIA [None]
  - PLEURAL EFFUSION [None]
  - PNEUMONIA [None]
